FAERS Safety Report 22125027 (Version 1)
Quarter: 2023Q1

REPORT INFORMATION
  Report Type: Spontaneous
  Country: ES (occurrence: ES)
  Receive Date: 20230322
  Receipt Date: 20230322
  Transmission Date: 20230417
  Serious: Yes (Life-Threatening, Hospitalization, Other)
  Sender: FDA-Public Use
  Company Number: None

PATIENT
  Age: 75 Year
  Sex: Female
  Weight: 63 kg

DRUGS (3)
  1. BRAFTOVI [Suspect]
     Active Substance: ENCORAFENIB
     Indication: Lentigo maligna stage IV
     Dosage: 450 MG, ONCE A DAY
     Route: 048
     Dates: start: 20230217, end: 20230224
  2. MEKTOVI [Suspect]
     Active Substance: BINIMETINIB
     Indication: Lentigo maligna
     Dosage: 45MG, 2 TIMES A DAY
     Route: 048
     Dates: start: 20230217
  3. JANUMET [Concomitant]
     Active Substance: METFORMIN HYDROCHLORIDE\SITAGLIPTIN PHOSPHATE
     Indication: Diabetes mellitus
     Dosage: 1 TABLET, 2 TIMES A DAY
     Route: 048
     Dates: start: 20200908, end: 20230224

REACTIONS (2)
  - Acute kidney injury [Recovering/Resolving]
  - Renal tubular necrosis [Recovering/Resolving]

NARRATIVE: CASE EVENT DATE: 20230224
